FAERS Safety Report 9816458 (Version 1)
Quarter: 2014Q1

REPORT INFORMATION
  Report Type: Spontaneous
  Country: US (occurrence: US)
  Receive Date: 20140114
  Receipt Date: 20140114
  Transmission Date: 20141002
  Serious: No
  Sender: FDA-Public Use
  Company Number: US-GE HEALTHCARE MEDICAL DIAGNOSTICS-MYVW-PR-1312S-0106

PATIENT
  Sex: 0

DRUGS (2)
  1. MYOVIEW [Suspect]
     Indication: PRODUCT USED FOR UNKNOWN INDICATION
     Dosage: DOSE NOT REPORTED
     Route: 042
     Dates: start: 20131218, end: 20131218
  2. MYOVIEW [Suspect]
     Indication: DIAGNOSTIC PROCEDURE

REACTIONS (1)
  - Radioisotope scan abnormal [Recovered/Resolved]
